FAERS Safety Report 7082862-5 (Version None)
Quarter: 2010Q4

REPORT INFORMATION
  Report Type: 
  Country: None (occurrence: None)
  Receive Date: 20101104
  Receipt Date: 20101021
  Transmission Date: 20110411
  Serious: Yes (Hospitalization)
  Sender: FDA-Public Use
  Company Number: PHHY2010NL70883

PATIENT
  Sex: Male

DRUGS (1)
  1. ZOMETA [Suspect]
     Dosage: 4 MG PER 5 ML
     Dates: start: 20100507

REACTIONS (3)
  - ABASIA [None]
  - FALL [None]
  - MUSCULAR WEAKNESS [None]
